FAERS Safety Report 10143221 (Version 1)
Quarter: 2014Q2

REPORT INFORMATION
  Report Type: Spontaneous
  Country: US (occurrence: None)
  Receive Date: 20140429
  Receipt Date: 20140429
  Transmission Date: 20141212
  Serious: Yes (Other)
  Sender: FDA-Public Use
  Company Number: None

PATIENT
  Age: 18 Year
  Sex: Male
  Weight: 81.65 kg

DRUGS (2)
  1. BUPROPRION SR [Suspect]
     Indication: SOCIAL PHOBIA
     Route: 048
     Dates: start: 20140302, end: 20140421
  2. BUPROPRION SR [Suspect]
     Indication: MAJOR DEPRESSION
     Route: 048
     Dates: start: 20140302, end: 20140421

REACTIONS (3)
  - Pain in jaw [None]
  - Joint stiffness [None]
  - Trismus [None]
